FAERS Safety Report 6025474-4 (Version None)
Quarter: 2008Q4

REPORT INFORMATION
  Report Type: 
  Country: None (occurrence: None)
  Receive Date: 20081224
  Receipt Date: 20081211
  Transmission Date: 20090506
  Serious: Yes (Hospitalization)
  Sender: FDA-Public Use
  Company Number: 2008-188308-NL

PATIENT
  Age: 66 Year
  Sex: Male

DRUGS (3)
  1. MIRTAZAPINE [Suspect]
     Indication: MAJOR DEPRESSION
     Dosage: 15 MG/7.5 MG ORAL
     Route: 048
     Dates: start: 20081118, end: 20081208
  2. MIRTAZAPINE [Suspect]
     Indication: MAJOR DEPRESSION
     Dosage: 15 MG/7.5 MG ORAL
     Route: 048
     Dates: start: 20081209
  3. ARIPIPRAZOLE [Concomitant]

REACTIONS (2)
  - HYPOPHAGIA [None]
  - INAPPROPRIATE ANTIDIURETIC HORMONE SECRETION [None]
